FAERS Safety Report 18940506 (Version 1)
Quarter: 2021Q1

REPORT INFORMATION
  Report Type: Spontaneous
  Country: FR (occurrence: FR)
  Receive Date: 20210225
  Receipt Date: 20210225
  Transmission Date: 20210420
  Serious: Yes (Hospitalization)
  Sender: FDA-Public Use
  Company Number: NVSC2021FR035543

PATIENT
  Age: 36 Year
  Sex: Female
  Weight: 56 kg

DRUGS (8)
  1. BACTRIM [Suspect]
     Active Substance: SULFAMETHOXAZOLE\TRIMETHOPRIM
     Dosage: 3 G, QD
     Route: 048
     Dates: start: 20210108, end: 20210122
  2. DOLIPRANE [Concomitant]
     Active Substance: ACETAMINOPHEN
     Indication: PRODUCT USED FOR UNKNOWN INDICATION
     Dosage: 4 G,QD
     Route: 065
  3. LAROXYL [Concomitant]
     Active Substance: AMITRIPTYLINE HYDROCHLORIDE
     Indication: PRODUCT USED FOR UNKNOWN INDICATION
     Dosage: UNK, 16 GOUTTES PAR JOUR, 4 GOUTTES MAX/PRISE
     Route: 048
  4. POSACONAZOLE [Suspect]
     Active Substance: POSACONAZOLE
     Indication: OSTEITIS
     Dosage: 300 MG,QD
     Route: 048
     Dates: start: 20210108, end: 20210122
  5. VANCOMYCIN [Suspect]
     Active Substance: VANCOMYCIN
     Indication: OSTEITIS
     Dosage: 1 G, Q12H
     Route: 042
     Dates: start: 20210108, end: 20210122
  6. BACTRIM [Suspect]
     Active Substance: SULFAMETHOXAZOLE\TRIMETHOPRIM
     Indication: OSTEITIS
     Dosage: 3 G, QD
     Route: 048
     Dates: start: 20210108
  7. CETIRIZINE [Concomitant]
     Active Substance: CETIRIZINE HYDROCHLORIDE
     Indication: PRODUCT USED FOR UNKNOWN INDICATION
     Dosage: 10 MG,QD
     Route: 048
  8. KARDEGIC [Concomitant]
     Active Substance: ASPIRIN DL-LYSINE
     Indication: PRODUCT USED FOR UNKNOWN INDICATION
     Dosage: 75 MG,QD
     Route: 048

REACTIONS (1)
  - Bicytopenia [Recovering/Resolving]

NARRATIVE: CASE EVENT DATE: 20210119
